FAERS Safety Report 7277091-6 (Version None)
Quarter: 2011Q1

REPORT INFORMATION
  Report Type: 
  Country: None (occurrence: None)
  Receive Date: 20110207
  Receipt Date: 20110126
  Transmission Date: 20110831
  Serious: Yes (Other)
  Sender: FDA-Public Use
  Company Number: JP-PFIZER INC-2011024261

PATIENT
  Age: 66 Year

DRUGS (7)
  1. 5-FU [Suspect]
     Indication: LARGE INTESTINE CARCINOMA
     Route: 040
  2. CAMPTOSAR [Suspect]
     Indication: LARGE INTESTINE CARCINOMA
     Route: 041
  3. AVASTIN [Suspect]
     Indication: LARGE INTESTINE CARCINOMA
     Route: 041
  4. LEUCOVORIN CALCIUM [Suspect]
     Indication: LARGE INTESTINE CARCINOMA
     Route: 041
  5. 5-FU [Suspect]
     Route: 041
  6. ERBITUX [Suspect]
     Indication: LARGE INTESTINE CARCINOMA
     Route: 041
  7. OXALIPLATIN [Suspect]
     Indication: LARGE INTESTINE CARCINOMA
     Route: 041

REACTIONS (3)
  - STOMATITIS [None]
  - NEUTROPENIA [None]
  - NEUROPATHY PERIPHERAL [None]
